FAERS Safety Report 9180911 (Version 1)
Quarter: 2013Q1

REPORT INFORMATION
  Report Type: Spontaneous
  Country: MX (occurrence: MX)
  Receive Date: 20130322
  Receipt Date: 20130322
  Transmission Date: 20140127
  Serious: Yes (Hospitalization)
  Sender: FDA-Public Use
  Company Number: PHHY2013MX027377

PATIENT
  Age: 81 Year
  Sex: Female

DRUGS (14)
  1. EXELON PATCH [Suspect]
     Indication: PARKINSON^S DISEASE
     Dosage: 1 (10CM2/9.5MG) PATCH DAILY
     Route: 062
     Dates: start: 201211, end: 201302
  2. STALEVO [Concomitant]
  3. AMARYL [Concomitant]
  4. NEXIUM//ESOMEPRAZOLE SODIUM [Concomitant]
  5. PEMIX//CINITAPRIDE TARTRATE [Concomitant]
  6. PRADAXAR [Concomitant]
  7. MACRODANTINA [Concomitant]
  8. ZALDIAR [Concomitant]
  9. LEXAPRO [Concomitant]
  10. MYCOSTATIN [Concomitant]
  11. METICORTEN [Concomitant]
  12. AVELOX [Concomitant]
  13. RISPERDAL [Concomitant]
  14. SIFROL [Concomitant]

REACTIONS (5)
  - Pneumonia [Not Recovered/Not Resolved]
  - Asphyxia [Not Recovered/Not Resolved]
  - Fatigue [Not Recovered/Not Resolved]
  - Hypoglycaemia [Not Recovered/Not Resolved]
  - Blood sodium decreased [Not Recovered/Not Resolved]
